FAERS Safety Report 13130274 (Version 7)
Quarter: 2018Q3

REPORT INFORMATION
  Report Type: Spontaneous
  Country: CA (occurrence: CA)
  Receive Date: 20170119
  Receipt Date: 20180815
  Transmission Date: 20181010
  Serious: Yes (Hospitalization, Other)
  Sender: FDA-Public Use
  Company Number: CA-AMGEN-CANSP2017006759

PATIENT
  Age: 76 Year
  Sex: Female

DRUGS (4)
  1. ARANESP [Suspect]
     Active Substance: DARBEPOETIN ALFA
     Indication: PRODUCT USED FOR UNKNOWN INDICATION
     Dosage: UNK (100 CC)
     Route: 065
  2. ARANESP [Suspect]
     Active Substance: DARBEPOETIN ALFA
     Dosage: 145 MG, UNK
     Route: 065
  3. CALCIUM [Concomitant]
     Active Substance: CALCIUM
     Dosage: UNK
  4. IRON [Concomitant]
     Active Substance: IRON
     Dosage: UNK

REACTIONS (15)
  - Life support [Not Recovered/Not Resolved]
  - Cerebrovascular accident [Unknown]
  - Hypoacusis [Unknown]
  - Contusion [Unknown]
  - Musculoskeletal disorder [Unknown]
  - Hypoaesthesia [Unknown]
  - Overdose [Unknown]
  - Swelling [Unknown]
  - Arthralgia [Unknown]
  - Speech disorder [Unknown]
  - Adverse drug reaction [Unknown]
  - Neck pain [Unknown]
  - Disability [Unknown]
  - Hypertension [Unknown]
  - Hypersensitivity [Recovering/Resolving]

NARRATIVE: CASE EVENT DATE: 20170725
